FAERS Safety Report 7689603 (Version 5)
Quarter: 2014Q1

REPORT INFORMATION
  Report Type: Spontaneous
  Country: CA (occurrence: None)
  Receive Date: 20101013
  Receipt Date: 20140130
  Transmission Date: 20141002
  Serious: Yes (Other)
  Sender: FDA-Public Use
  Company Number: CA-145086

PATIENT
  Age: 58 Year
  Sex: Female

DRUGS (1)
  1. WINRHO SDF [Suspect]
     Indication: IMMUNE THROMBOCYTOPENIC PURPURA
     Route: 042
     Dates: start: 20100827, end: 20100827

REACTIONS (13)
  - Pyrexia [None]
  - Chills [None]
  - Tachycardia [None]
  - Headache [None]
  - Myalgia [None]
  - Neck pain [None]
  - Haemolysis [None]
  - White blood cell count increased [None]
  - Blood lactate dehydrogenase increased [None]
  - Blood bilirubin increased [None]
  - Overdose [None]
  - Haemoglobin decreased [None]
  - Extravascular haemolysis [None]
